FAERS Safety Report 24764310 (Version 2)
Quarter: 2025Q1

REPORT INFORMATION
  Report Type: Spontaneous
  Country: US (occurrence: US)
  Receive Date: 20241223
  Receipt Date: 20250217
  Transmission Date: 20250409
  Serious: No
  Sender: KARYOPHARM THERAPEUTICS
  Company Number: US-KARYOPHARM-2024KPT001912

PATIENT

DRUGS (9)
  1. XPOVIO [Suspect]
     Active Substance: SELINEXOR
     Indication: Plasma cell myeloma
     Dosage: 100 MG, WEEKLY FOR 3 WEEKS AND 1 WEEK OFF
     Route: 048
     Dates: start: 20240828
  2. ACYCLOVIR [Concomitant]
     Active Substance: ACYCLOVIR
  3. ASPIRIN [Concomitant]
     Active Substance: ASPIRIN
  4. DEXAMETHASONE [Concomitant]
     Active Substance: DEXAMETHASONE
     Route: 048
  5. DEXAMETHASONE [Concomitant]
     Active Substance: DEXAMETHASONE
     Route: 048
  6. KYPROLIS [Concomitant]
     Active Substance: CARFILZOMIB
     Route: 042
  7. POMALYST [Concomitant]
     Active Substance: POMALIDOMIDE
  8. UDENYCA [Concomitant]
     Active Substance: PEGFILGRASTIM-CBQV
     Route: 058
  9. XGEVA [Concomitant]
     Active Substance: DENOSUMAB

REACTIONS (2)
  - Feeling abnormal [Unknown]
  - Nausea [Unknown]

NARRATIVE: CASE EVENT DATE: 20240101
